FAERS Safety Report 12347983 (Version 1)
Quarter: 2016Q2

REPORT INFORMATION
  Report Type: Report from Study
  Country: US (occurrence: US)
  Receive Date: 20160509
  Receipt Date: 20160509
  Transmission Date: 20160815
  Serious: Yes (Other)
  Sender: FDA-Public Use
  Company Number: US-GILEAD-2016-0212222

PATIENT
  Age: 63 Year
  Sex: Female

DRUGS (3)
  1. SOFOSBUVIR [Suspect]
     Active Substance: SOFOSBUVIR
     Indication: HEPATITIS C
     Dosage: 400 MG, UNK
     Route: 048
     Dates: start: 20151203
  2. DAKLINZA [Concomitant]
     Active Substance: DACLATASVIR
  3. RIBAVIRIN. [Suspect]
     Active Substance: RIBAVIRIN
     Indication: HEPATITIS C
     Dosage: UNK
     Route: 065
     Dates: end: 20160501

REACTIONS (12)
  - Angina pectoris [Unknown]
  - Headache [Unknown]
  - Abasia [Unknown]
  - Movement disorder [Unknown]
  - Tinnitus [Unknown]
  - Renal pain [Unknown]
  - Feeling abnormal [Unknown]
  - Nephrolithiasis [Unknown]
  - Visual impairment [Unknown]
  - Bipolar disorder [Unknown]
  - Pain [Unknown]
  - Post-traumatic stress disorder [Unknown]
